FAERS Safety Report 7488811-X (Version None)
Quarter: 2011Q1

REPORT INFORMATION
  Report Type: 
  Country: None (occurrence: None)
  Receive Date: 20110314
  Receipt Date: 20101220
  Transmission Date: 20110831
  Serious: Yes (Other)
  Sender: FDA-Public Use
  Company Number: D-10-038

PATIENT
  Age: 67 Year
  Sex: Female

DRUGS (5)
  1. IPRATROPIUM BROMIDE AND ALBUTEROL SULFATE [Suspect]
     Indication: BRONCHOSPASM
     Dosage: INHALATION VIA NEBULIZER
     Route: 055
     Dates: start: 20101201
  2. PREMARIN [Concomitant]
  3. ATIVAN [Concomitant]
  4. ZITHROMAX [Concomitant]
  5. PROVERA [Concomitant]

REACTIONS (2)
  - PHARYNGITIS [None]
  - ANAPHYLACTIC REACTION [None]
